FAERS Safety Report 10332578 (Version 1)
Quarter: 2014Q3

REPORT INFORMATION
  Report Type: Spontaneous
  Country: US (occurrence: US)
  Receive Date: 20140722
  Receipt Date: 20140722
  Transmission Date: 20150326
  Serious: Yes (Other)
  Sender: FDA-Public Use
  Company Number: US-GLAXOSMITHKLINE-A1082201A

PATIENT
  Age: 60 Year
  Sex: Male

DRUGS (6)
  1. CITRACAL [Concomitant]
     Active Substance: CALCIUM CITRATE
  2. WARFARIN [Suspect]
     Active Substance: WARFARIN
     Indication: PRODUCT USED FOR UNKNOWN INDICATION
     Route: 048
     Dates: start: 2002
  3. ALPHA LIPOIC ACID [Concomitant]
     Active Substance: .ALPHA.-LIPOIC ACID
  4. METOPROLOL [Suspect]
     Active Substance: METOPROLOL
     Indication: PRODUCT USED FOR UNKNOWN INDICATION
     Route: 065
     Dates: start: 201406
  5. MAGNESIUM OXIDE. [Suspect]
     Active Substance: MAGNESIUM OXIDE
     Indication: PRODUCT USED FOR UNKNOWN INDICATION
     Dosage: 400MG UNKNOWN
     Route: 065
  6. RANITIDINE [Suspect]
     Active Substance: RANITIDINE\RANITIDINE HYDROCHLORIDE
     Indication: GASTRIC DISORDER
     Dosage: 1TAB TWICE PER DAY
     Route: 065
     Dates: start: 201407

REACTIONS (11)
  - Speech disorder [Unknown]
  - Emergency care examination [Unknown]
  - Balance disorder [Not Recovered/Not Resolved]
  - Ill-defined disorder [Not Recovered/Not Resolved]
  - Dizziness [Unknown]
  - Dysstasia [Unknown]
  - Drug interaction [Not Recovered/Not Resolved]
  - Cerebrovascular accident [Unknown]
  - Nervous system disorder [Not Recovered/Not Resolved]
  - Gastric disorder [Not Recovered/Not Resolved]
  - Respiratory disorder [Not Recovered/Not Resolved]

NARRATIVE: CASE EVENT DATE: 201406
